FAERS Safety Report 7701039-0 (Version None)
Quarter: 2011Q3

REPORT INFORMATION
  Report Type: 
  Country: None (occurrence: None)
  Receive Date: 20110822
  Receipt Date: 20110815
  Transmission Date: 20111222
  Serious: Yes (Death, Other)
  Sender: FDA-Public Use
  Company Number: US-BAYER-201041648NA

PATIENT
  Age: 83 Year
  Sex: Male
  Weight: 81.64 kg

DRUGS (32)
  1. ASPIRIN [Concomitant]
     Route: 048
  2. CEFAZOLIN [Concomitant]
     Dosage: 1 GM, UNK
     Route: 042
     Dates: start: 20040917
  3. METFORMIN HYDROCHLORIDE [Concomitant]
     Dosage: 500 MG, BID
  4. MANNITOL [Concomitant]
     Dosage: 12.5 MG, UNK
     Route: 042
     Dates: start: 20040917
  5. POTASSIUM CHLORIDE [Concomitant]
     Dosage: 10 MEQ, QOD
  6. TRASYLOL [Suspect]
     Indication: CORONARY ARTERY BYPASS
     Dosage: 20 CC/HR, UNK
     Route: 042
     Dates: start: 20040917, end: 20040917
  7. DOBUTAMINE HCL [Concomitant]
     Route: 048
  8. LASIX [Concomitant]
     Dosage: 20 MG, QOD
  9. FENTANYL [Concomitant]
     Dosage: UNK
     Route: 042
     Dates: start: 20040917
  10. PHENYLEPHRINE HCL [Concomitant]
     Dosage: UNK
     Route: 042
     Dates: start: 20040917
  11. LISINOPRIL [Concomitant]
     Dosage: 20 MG, 2 TABLETS IN THE MORNING AND ONE AT NIGHT
  12. SPIRONOLACTONE [Concomitant]
     Dosage: 25 MG, HALF TABLET TWICE DAILY
  13. PROTAMINE [Concomitant]
     Dosage: 450 MG, UNK
     Route: 042
     Dates: start: 20040917
  14. LIDOCAINE [Concomitant]
     Dosage: 100 MG, UNK
     Route: 042
     Dates: start: 20040917
  15. CALCIUM CHLORIDE [Concomitant]
     Dosage: 1 GM, UNK
     Route: 042
     Dates: start: 20040917
  16. DIGOXIN [Concomitant]
     Dosage: 0.125 MG, QD
  17. GLYBURIDE [Concomitant]
     Dosage: 2.5 MG, QD
  18. TRASYLOL [Suspect]
     Indication: AORTIC VALVE REPLACEMENT
  19. HEPARIN [Concomitant]
     Dosage: 30, 000 U, UNK
     Route: 042
     Dates: start: 20040917
  20. ANCEF [Concomitant]
     Dosage: 2 GMS, UNK
     Route: 042
     Dates: start: 20040917
  21. PROPOFOL [Concomitant]
     Dosage: UNK
     Route: 042
     Dates: start: 20040917
  22. ALBUMIN (HUMAN) [Concomitant]
     Dosage: 50 ML, UNK
     Route: 042
     Dates: start: 20040917
  23. COLCHICINE [Concomitant]
     Dosage: 0.6 MG, PRN
  24. TERAZOSIN HCL [Concomitant]
     Dosage: 5 MG, HS
  25. COUMADIN [Concomitant]
     Dosage: UNK
  26. NIFEDIPINE [Concomitant]
     Route: 048
  27. DOPAMINE HCL [Concomitant]
     Dosage: 3 CC/HR
     Route: 042
     Dates: start: 20040917
  28. MILRINONE [Concomitant]
     Dosage: UNK
     Route: 042
     Dates: start: 20040917
  29. NITROGLYCERIN [Concomitant]
     Dosage: UNK
     Route: 042
     Dates: start: 20040917
  30. GARLIC [Concomitant]
     Dosage: TWICE DAILY
  31. FAMOTIDINE [Concomitant]
     Route: 048
  32. ALLOPURINOL [Concomitant]
     Dosage: 100 MG, QD

REACTIONS (12)
  - MULTI-ORGAN FAILURE [None]
  - RENAL FAILURE [None]
  - INJURY [None]
  - RENAL INJURY [None]
  - DEATH [None]
  - PAIN [None]
  - UNEVALUABLE EVENT [None]
  - ANXIETY [None]
  - EMOTIONAL DISTRESS [None]
  - FEAR [None]
  - RENAL IMPAIRMENT [None]
  - STRESS [None]
